FAERS Safety Report 21743774 (Version 1)
Quarter: 2022Q4

REPORT INFORMATION
  Report Type: Report from Study
  Country: US (occurrence: US)
  Receive Date: 20221217
  Receipt Date: 20221217
  Transmission Date: 20230112
  Serious: No
  Sender: FDA-Public Use
  Company Number: US-ABBVIE-4202559

PATIENT
  Sex: Male

DRUGS (1)
  1. HUMIRA [Suspect]
     Active Substance: ADALIMUMAB
     Indication: Product used for unknown indication
     Dosage: CF?FORM STRENGTH 40 MILLIGRAM
     Route: 058

REACTIONS (5)
  - Inflammatory marker decreased [Unknown]
  - Haematochezia [Recovering/Resolving]
  - Drug level below therapeutic [Unknown]
  - Abdominal pain [Recovering/Resolving]
  - Drug specific antibody absent [Unknown]
